FAERS Safety Report 24731261 (Version 1)
Quarter: 2024Q4

REPORT INFORMATION
  Report Type: Spontaneous
  Country: US (occurrence: US)
  Receive Date: 20241213
  Receipt Date: 20241213
  Transmission Date: 20250115
  Serious: No
  Sender: VIVUS
  Company Number: US-VIVUS LLC-2024V1000382

PATIENT
  Sex: Male

DRUGS (5)
  1. PANCREAZE [Suspect]
     Active Substance: PANCRELIPASE AMYLASE\PANCRELIPASE LIPASE\PANCRELIPASE PROTEASE
     Indication: Pancreatic failure
     Dosage: 37,000 USP UNITS?3 CAPSULES PER MEAL WITH APPLESAUCE AND 2 CAPSULES PER MEAL WITH SNACK
     Route: 048
  2. PANCREAZE [Suspect]
     Active Substance: PANCRELIPASE AMYLASE\PANCRELIPASE LIPASE\PANCRELIPASE PROTEASE
     Dosage: 37,000 USP UNITS?3 CAPSULES PER MEAL WITH APPLESAUCE AND 2 CAPSULES PER MEAL WITH SNACK
     Route: 048
  3. PANCREAZE [Suspect]
     Active Substance: PANCRELIPASE AMYLASE\PANCRELIPASE LIPASE\PANCRELIPASE PROTEASE
     Dosage: 37,000 USP UNITS?3 CAPSULES PER MEAL
     Route: 048
  4. PANCREAZE [Suspect]
     Active Substance: PANCRELIPASE AMYLASE\PANCRELIPASE LIPASE\PANCRELIPASE PROTEASE
     Dosage: 37,000 USP UNITS?2 CAPSULES PER MEAL
     Route: 048
  5. INSULIN NOS [Concomitant]
     Active Substance: INSULIN NOS
     Indication: Diabetes mellitus

REACTIONS (4)
  - Gastric pH decreased [Recovered/Resolved]
  - Blood glucose increased [Not Recovered/Not Resolved]
  - Drug ineffective [Not Recovered/Not Resolved]
  - Product use complaint [Not Recovered/Not Resolved]
